FAERS Safety Report 9790912 (Version 2)
Quarter: 2013Q4

REPORT INFORMATION
  Report Type: Report from Study
  Country: US (occurrence: US)
  Receive Date: 20131231
  Receipt Date: 20131231
  Transmission Date: 20140711
  Serious: Yes (Hospitalization, Other)
  Sender: FDA-Public Use
  Company Number: US-ACTELION-A-NJ2012-73051

PATIENT
  Age: 56 Year
  Sex: Female

DRUGS (3)
  1. TRACLEER [Suspect]
     Indication: PULMONARY ARTERIAL HYPERTENSION
     Dosage: UNK
     Route: 048
     Dates: start: 20111215
  2. ASPIRIN [Concomitant]
  3. FUROSEMIDE [Concomitant]

REACTIONS (6)
  - Hernia [Unknown]
  - Aortic aneurysm [Recovering/Resolving]
  - Ascites [Recovering/Resolving]
  - Nausea [Recovering/Resolving]
  - Vomiting [Recovering/Resolving]
  - Constipation [Recovering/Resolving]
